FAERS Safety Report 18092374 (Version 4)
Quarter: 2023Q4

REPORT INFORMATION
  Report Type: Report from Study
  Country: CA (occurrence: CA)
  Receive Date: 20200730
  Receipt Date: 20231222
  Transmission Date: 20240110
  Serious: Yes (Other)
  Sender: FDA-Public Use
  Company Number: NVSC2020CA018674

PATIENT
  Age: 55 Year
  Sex: Female

DRUGS (6)
  1. COSENTYX [Suspect]
     Active Substance: SECUKINUMAB
     Indication: Psoriasis
     Dosage: 300 MG, QMO
     Route: 058
     Dates: start: 20191119
  2. COSENTYX [Suspect]
     Active Substance: SECUKINUMAB
     Dosage: 150 MG, UNKNOWN
     Route: 058
     Dates: start: 20200110
  3. COSENTYX [Suspect]
     Active Substance: SECUKINUMAB
     Dosage: 150 MG, UNKNOWN
     Route: 058
     Dates: start: 20200117
  4. COSENTYX [Suspect]
     Active Substance: SECUKINUMAB
     Dosage: 300 MG, QMO
     Route: 058
     Dates: start: 2020
  5. COSENTYX [Suspect]
     Active Substance: SECUKINUMAB
     Dosage: UNK (RECEIVED ON FRIDAY)
     Route: 065
  6. PREDNISONE [Concomitant]
     Active Substance: PREDNISONE
     Indication: Product used for unknown indication
     Dosage: 50 MG, QD
     Route: 048
     Dates: start: 20191007

REACTIONS (11)
  - Lymphoma [Recovered/Resolved]
  - Psoriatic arthropathy [Unknown]
  - Arthralgia [Unknown]
  - Joint swelling [Unknown]
  - Acne [Unknown]
  - Feeling abnormal [Unknown]
  - Influenza like illness [Unknown]
  - Swelling face [Unknown]
  - Rhinorrhoea [Unknown]
  - Psoriasis [Unknown]
  - Inappropriate schedule of product administration [Unknown]

NARRATIVE: CASE EVENT DATE: 20230101
